FAERS Safety Report 12262854 (Version 1)
Quarter: 2016Q2

REPORT INFORMATION
  Report Type: Spontaneous
  Country: US (occurrence: US)
  Receive Date: 20160413
  Receipt Date: 20160413
  Transmission Date: 20160815
  Serious: Yes (Other)
  Sender: FDA-Public Use
  Company Number: US-ASTRAZENECA-2016SE37520

PATIENT
  Sex: Female

DRUGS (1)
  1. TOPROL XL [Suspect]
     Active Substance: METOPROLOL SUCCINATE
     Dosage: GENERIC, 100 MG
     Route: 048

REACTIONS (4)
  - Choking [Unknown]
  - Sensation of foreign body [Unknown]
  - Ulcer haemorrhage [Unknown]
  - Vomiting [Unknown]
